FAERS Safety Report 14639166 (Version 1)
Quarter: 2018Q1

REPORT INFORMATION
  Report Type: Spontaneous
  Country: FR (occurrence: FR)
  Receive Date: 20180315
  Receipt Date: 20180315
  Transmission Date: 20180509
  Serious: Yes (Hospitalization)
  Sender: FDA-Public Use
  Company Number: FR-SUN PHARMACEUTICAL INDUSTRIES LTD-2018RR-166375

PATIENT
  Age: 55 Year
  Sex: Male
  Weight: 73 kg

DRUGS (2)
  1. IBUPROFENE [Suspect]
     Active Substance: IBUPROFEN
     Indication: PAIN
     Dosage: ()
     Route: 048
  2. DOLIPRANE [Suspect]
     Active Substance: ACETAMINOPHEN
     Indication: PAIN
     Dosage: ()
     Route: 048

REACTIONS (3)
  - Condition aggravated [Recovering/Resolving]
  - Lung disorder [Recovering/Resolving]
  - Pleurisy [Recovering/Resolving]
